FAERS Safety Report 5879749-X (Version None)
Quarter: 2008Q3

REPORT INFORMATION
  Report Type: 
  Country: None (occurrence: None)
  Receive Date: 20080912
  Receipt Date: 20080828
  Transmission Date: 20090109
  Serious: Yes (Death, Hospitalization)
  Sender: FDA-Public Use
  Company Number: FR-GENENTECH-266678

PATIENT
  Sex: Male

DRUGS (9)
  1. BEVACIZUMAB [Suspect]
     Indication: METASTATIC RENAL CELL CARCINOMA
     Dosage: 10 MG/KG, Q2W
     Route: 041
     Dates: start: 20080502, end: 20080808
  2. TEMSIROLIMUS [Suspect]
     Indication: METASTATIC RENAL CELL CARCINOMA
     Dosage: 25 MG, UNK
     Route: 041
     Dates: start: 20080502
  3. TEMSIROLIMUS [Suspect]
     Dosage: 20 MG, UNK
     Dates: start: 20080620
  4. TEMSIROLIMUS [Suspect]
     Dosage: 15 MG, QD
     Dates: end: 20080808
  5. TAHOR [Concomitant]
     Indication: DRUG USE FOR UNKNOWN INDICATION
     Dosage: UNK
     Dates: start: 20080101
  6. LOVENOX [Concomitant]
     Indication: DRUG USE FOR UNKNOWN INDICATION
     Dosage: UNK
     Dates: start: 20080401
  7. ALDACTONE [Concomitant]
     Indication: DRUG USE FOR UNKNOWN INDICATION
     Dosage: UNK
     Dates: start: 20080101
  8. LIPANTHYL [Concomitant]
     Indication: DRUG USE FOR UNKNOWN INDICATION
     Dosage: UNK
     Dates: start: 20080725
  9. ZOMETA [Concomitant]
     Indication: DRUG USE FOR UNKNOWN INDICATION
     Dosage: UNK
     Dates: start: 20080725

REACTIONS (6)
  - ANXIETY [None]
  - PYREXIA [None]
  - RESPIRATORY FAILURE [None]
  - SPINAL CORD COMPRESSION [None]
  - STREPTOCOCCAL INFECTION [None]
  - URINARY TRACT INFECTION [None]
